FAERS Safety Report 6543851-X (Version None)
Quarter: 2010Q1

REPORT INFORMATION
  Report Type: 
  Country: None (occurrence: None)
  Receive Date: 20100119
  Receipt Date: 20100119
  Transmission Date: 20100710
  Serious: Yes (Hospitalization)
  Sender: FDA-Public Use
  Company Number: None

PATIENT
  Age: 65 Year
  Sex: Male
  Weight: 101.6 kg

DRUGS (1)
  1. LISINOPRIL AND HYDROCHLOROTHIAZIDE [Suspect]
     Indication: PAIN
     Dosage: 50/40 MG EVERY DAY PO
     Route: 048
     Dates: start: 20081030, end: 20091127

REACTIONS (1)
  - PANCREATITIS [None]
